FAERS Safety Report 21517850 (Version 1)
Quarter: 2022Q4

REPORT INFORMATION
  Report Type: Other
  Country: DE (occurrence: DE)
  Receive Date: 20221028
  Receipt Date: 20221028
  Transmission Date: 20230113
  Serious: Yes (Other)
  Sender: FDA-Public Use
  Company Number: DE-CELLTRION INC.-2022DE017520

PATIENT

DRUGS (5)
  1. RITUXIMAB [Suspect]
     Active Substance: RITUXIMAB
     Indication: Follicular lymphoma
     Dosage: EVERY 21 DAYS, MAINTENANCE AFTER THE FOURTH LINE, THIRD LINE TREATMENT: 6 CYCLES (AS R-CHOP 21)
     Route: 065
  2. LENALIDOMIDE [Suspect]
     Active Substance: LENALIDOMIDE
     Indication: Follicular lymphoma
     Dosage: FOURTH LINE TREATMENT: 6 CYCLES TOGETHER WITH RITUXIMAB, MAINTENANCE AFTER THE FOURTH LINE
     Route: 065
  3. OBINUTUZUMAB [Suspect]
     Active Substance: OBINUTUZUMAB
     Indication: Follicular lymphoma
     Dosage: SECOND LINE TREATMENT: 6 CYCLES TOGETHER WITH BENDAMUSTINE (ROA-20045000)
     Route: 065
  4. CYCLOPHOSPHAMIDE\DOXORUBICIN\PREDNISONE\VINCRISTINE [Suspect]
     Active Substance: CYCLOPHOSPHAMIDE\DOXORUBICIN\PREDNISONE\VINCRISTINE
     Indication: Follicular lymphoma
     Dosage: EVERY 21 DAYS, THIRD LINE TREATMENT: 6 CYCLES TOGETHER WITH RITUXIMAB, MAINTENANCE AFTER R-CHOP
     Route: 065
  5. BENDAMUSTINE [Suspect]
     Active Substance: BENDAMUSTINE
     Indication: Follicular lymphoma
     Dosage: SECOND LINE TREATMENT: 6 CYCLES TOGETHER WITH GAZYVARO, MAINTENANCE (NOS)
     Route: 065

REACTIONS (3)
  - Follicular lymphoma [Not Recovered/Not Resolved]
  - Disease progression [Not Recovered/Not Resolved]
  - Off label use [Not Recovered/Not Resolved]
